FAERS Safety Report 23974510 (Version 1)
Quarter: 2024Q2

REPORT INFORMATION
  Report Type: Spontaneous
  Country: US (occurrence: US)
  Receive Date: 20240614
  Receipt Date: 20240614
  Transmission Date: 20240716
  Serious: Yes (Other)
  Sender: FDA-Public Use
  Company Number: US-UCBSA-2024029124

PATIENT
  Sex: Female
  Weight: 68.027 kg

DRUGS (2)
  1. CIMZIA [Suspect]
     Active Substance: CERTOLIZUMAB PEGOL
     Indication: Colitis ulcerative
     Dosage: 200 MILLIGRAM, EV 4 WEEKS
     Route: 058
     Dates: start: 201601
  2. CIMZIA [Suspect]
     Active Substance: CERTOLIZUMAB PEGOL
     Indication: Off label use

REACTIONS (6)
  - Breast cancer [Recovered/Resolved]
  - Skin cancer [Recovered/Resolved]
  - Crohn^s disease [Recovering/Resolving]
  - Breast conserving surgery [Recovered/Resolved]
  - Radiotherapy [Recovered/Resolved]
  - Off label use [Unknown]

NARRATIVE: CASE EVENT DATE: 20170101
